FAERS Safety Report 12665233 (Version 13)
Quarter: 2019Q2

REPORT INFORMATION
  Report Type: Report from Study
  Country: JP (occurrence: JP)
  Receive Date: 20160818
  Receipt Date: 20190508
  Transmission Date: 20190711
  Serious: Yes (Death, Hospitalization, Other)
  Sender: FDA-Public Use
  Company Number: JP-INCYTE CORPORATION-2016IN004894

PATIENT

DRUGS (10)
  1. JAKAVI [Suspect]
     Active Substance: RUXOLITINIB
     Dosage: 5MG, QD (3 TIMES (MON, WED, FRI) A WEEK)
     Route: 048
     Dates: start: 20160902, end: 20181003
  2. JAKAVI [Suspect]
     Active Substance: RUXOLITINIB
     Dosage: 5MG, QD (3 TIMES (MON, WED, FRI) A WEEK)
     Route: 048
     Dates: start: 20180411, end: 20180528
  3. JAKAVI [Suspect]
     Active Substance: RUXOLITINIB
     Dosage: 5 MG, QOD
     Route: 048
  4. JAKAVI [Suspect]
     Active Substance: RUXOLITINIB
     Indication: PRIMARY MYELOFIBROSIS
     Dosage: 5 MG, BID
     Route: 048
     Dates: start: 20160727, end: 20160822
  5. RED BLOOD CELLS-LEUKOCYTES REDUCED [Concomitant]
     Active Substance: HUMAN RED BLOOD CELL
     Indication: PRIMARY MYELOFIBROSIS
     Dosage: 2 IU, UNK
     Route: 065
     Dates: end: 20180525
  6. JAKAVI [Suspect]
     Active Substance: RUXOLITINIB
     Dosage: 5MG, QD (3 TIMES (MON, WED, FRI) A WEEK)
     Route: 048
     Dates: start: 20170213, end: 20170314
  7. JAKAVI [Suspect]
     Active Substance: RUXOLITINIB
     Dosage: 5 MG, QOD
     Route: 048
     Dates: end: 20170412
  8. JAKAVI [Suspect]
     Active Substance: RUXOLITINIB
     Dosage: 5MG, QD (3 TIMES (MON, WED, FRI) A WEEK)
     Route: 048
     Dates: start: 20170413, end: 20170522
  9. NESP [Concomitant]
     Active Substance: DARBEPOETIN ALFA
     Indication: ANAEMIA
     Dosage: 240 UG, UNK
     Route: 065
     Dates: end: 20180527
  10. NESP [Concomitant]
     Active Substance: DARBEPOETIN ALFA
     Indication: MYELODYSPLASTIC SYNDROME

REACTIONS (14)
  - Splenomegaly [Unknown]
  - Decreased appetite [Unknown]
  - Concomitant disease aggravated [Recovering/Resolving]
  - Hepatitis acute [Recovered/Resolved]
  - Hepatic function abnormal [Recovering/Resolving]
  - Cardiac failure chronic [Recovering/Resolving]
  - Primary myelofibrosis [Fatal]
  - Decreased immune responsiveness [Unknown]
  - Fatigue [Unknown]
  - Anaemia [Not Recovered/Not Resolved]
  - Cardiac failure chronic [Recovered/Resolved]
  - Pulmonary arterial hypertension [Recovering/Resolving]
  - Pyrexia [Not Recovered/Not Resolved]
  - Renal impairment [Recovering/Resolving]

NARRATIVE: CASE EVENT DATE: 20160802
